FAERS Safety Report 9678002 (Version 1)
Quarter: 2013Q4

REPORT INFORMATION
  Report Type: Spontaneous
  Country: US (occurrence: US)
  Receive Date: 20131108
  Receipt Date: 20131108
  Transmission Date: 20140711
  Serious: Yes (Hospitalization)
  Sender: FDA-Public Use
  Company Number: US-BAYER-2013-135086

PATIENT
  Age: 17 Year
  Sex: Female

DRUGS (6)
  1. YAZ [Suspect]
  2. YASMIN [Suspect]
  3. HYDROCODONE [Concomitant]
  4. DEXAMETHASONE [Concomitant]
     Dosage: 4 MG, UNK
  5. ADVIL [Concomitant]
     Indication: PAIN
  6. TYLENOL [PARACETAMOL] [Concomitant]
     Indication: PAIN

REACTIONS (1)
  - Deep vein thrombosis [None]
